FAERS Safety Report 6816864-8 (Version None)
Quarter: 2010Q3

REPORT INFORMATION
  Report Type: 
  Country: None (occurrence: None)
  Receive Date: 20100706
  Receipt Date: 20100624
  Transmission Date: 20110219
  Serious: Yes (Other)
  Sender: FDA-Public Use
  Company Number: US-JNJFOC-20100501128

PATIENT
  Age: 52 Year
  Sex: Female

DRUGS (4)
  1. NUCYNTA [Suspect]
     Indication: FIBROMYALGIA
     Route: 048
  2. CYMBALTA [Suspect]
     Indication: FIBROMYALGIA
     Route: 048
  3. LYRICA [Suspect]
     Indication: FIBROMYALGIA
     Route: 048
  4. SOMA [Suspect]
     Indication: FIBROMYALGIA
     Route: 048

REACTIONS (4)
  - HEADACHE [None]
  - MOOD SWINGS [None]
  - NAUSEA [None]
  - SEROTONIN SYNDROME [None]
